FAERS Safety Report 20619796 (Version 1)
Quarter: 2022Q1

REPORT INFORMATION
  Report Type: Other
  Country: AU (occurrence: None)
  Receive Date: 20220322
  Receipt Date: 20220322
  Transmission Date: 20220423
  Serious: Yes (Other)
  Sender: FDA-Public Use
  Company Number: AU-ROCHE-3045778

PATIENT
  Age: 63 Year
  Sex: Female

DRUGS (4)
  1. OCRELIZUMAB [Suspect]
     Active Substance: OCRELIZUMAB
     Indication: Multiple sclerosis
     Dosage: C4
     Route: 042
     Dates: start: 20220307
  2. LEVETIRACETAM [Concomitant]
     Active Substance: LEVETIRACETAM
  3. ROSUVASTATIN [Concomitant]
     Active Substance: ROSUVASTATIN
  4. IRBESARTAN [Concomitant]
     Active Substance: IRBESARTAN

REACTIONS (1)
  - Optic neuritis [Not Recovered/Not Resolved]

NARRATIVE: CASE EVENT DATE: 20220307
